FAERS Safety Report 4557201-1 (Version None)
Quarter: 2005Q1

REPORT INFORMATION
  Report Type: 
  Country: None (occurrence: None)
  Receive Date: 20050118
  Receipt Date: 20050104
  Transmission Date: 20050727
  Serious: Yes (Disabling)
  Sender: FDA-Public Use
  Company Number: 2004GB02339

PATIENT
  Age: 50 Year
  Sex: Male

DRUGS (7)
  1. CRESTOR [Suspect]
     Dosage: 10 MG QD PO
     Route: 048
     Dates: start: 20040105, end: 20040514
  2. ATORVASATIN [Suspect]
     Dosage: 10MG PO
     Route: 048
     Dates: start: 20021118, end: 20040101
  3. CALCIPOTRIOL [Concomitant]
  4. GLICLAZIDE [Concomitant]
  5. SULFASALAZINE [Concomitant]
  6. CERIVASTATIN [Suspect]
     Dosage: 0.4 MG PO
     Route: 048
     Dates: start: 20000101, end: 20000801
  7. FENOFIBRATE [Suspect]
     Dosage: 200 MG PO
     Route: 048
     Dates: start: 20000101, end: 20000801

REACTIONS (23)
  - ARTHRALGIA [None]
  - AUTOIMMUNE DISORDER [None]
  - BACK PAIN [None]
  - CARPAL TUNNEL SYNDROME [None]
  - CLUBBING [None]
  - CONJUNCTIVITIS ALLERGIC [None]
  - DIFFICULTY IN WALKING [None]
  - DRY SKIN [None]
  - DYSGEUSIA [None]
  - LIP HAEMORRHAGE [None]
  - MUSCLE ATROPHY [None]
  - MUSCLE INJURY [None]
  - MYALGIA [None]
  - NAIL PITTING [None]
  - NERVE INJURY [None]
  - OCULAR HYPERAEMIA [None]
  - PRURITUS [None]
  - PSORIATIC ARTHROPATHY [None]
  - PYREXIA [None]
  - RHINORRHOEA [None]
  - SKIN HAEMORRHAGE [None]
  - SYNOVITIS [None]
  - WEIGHT DECREASED [None]
